FAERS Safety Report 13795165 (Version 3)
Quarter: 2017Q3

REPORT INFORMATION
  Report Type: Spontaneous
  Country: ES (occurrence: ES)
  Receive Date: 20170726
  Receipt Date: 20170914
  Transmission Date: 20171127
  Serious: Yes (Life-Threatening, Hospitalization)
  Sender: FDA-Public Use
  Company Number: PHHY2017ES109558

PATIENT
  Sex: Male

DRUGS (1)
  1. TASIGNA [Suspect]
     Active Substance: NILOTINIB
     Indication: CHRONIC MYELOID LEUKAEMIA
     Dosage: 400 MG, BID
     Route: 048
     Dates: start: 20100216

REACTIONS (8)
  - Pallor [Unknown]
  - Hyperhidrosis [Unknown]
  - Myocardial infarction [Recovered/Resolved]
  - Chest pain [Unknown]
  - Walking disability [Unknown]
  - Chest discomfort [Unknown]
  - Restlessness [Unknown]
  - Fatigue [Unknown]

NARRATIVE: CASE EVENT DATE: 20170703
